FAERS Safety Report 7042269-3 (Version None)
Quarter: 2010Q4

REPORT INFORMATION
  Report Type: 
  Country: None (occurrence: None)
  Receive Date: 20101013
  Receipt Date: 20100309
  Transmission Date: 20110411
  Serious: No
  Sender: FDA-Public Use
  Company Number: US-ASTRAZENECA-2010SE10209

PATIENT
  Sex: Male
  Weight: 102.1 kg

DRUGS (6)
  1. SYMBICORT [Suspect]
     Indication: ASTHMA
     Dosage: 160/4.5 MCGR, 2 PUFFS
     Route: 055
     Dates: start: 20100302
  2. LOTREL [Concomitant]
     Indication: BLOOD PRESSURE MANAGEMENT
  3. CYMBALTA [Concomitant]
  4. PROVILE [Concomitant]
     Indication: MEDICAL DIET
  5. HYDROCHLOROTHIAZIDE [Concomitant]
     Indication: FLUID RETENTION
  6. POTASSIUM [Concomitant]
     Indication: ELECTROLYTE SUBSTITUTION THERAPY

REACTIONS (3)
  - COUGH [None]
  - DRUG INEFFECTIVE [None]
  - WHEEZING [None]
